FAERS Safety Report 19234042 (Version 2)
Quarter: 2021Q4

REPORT INFORMATION
  Report Type: Spontaneous
  Country: US (occurrence: US)
  Receive Date: 20210508
  Receipt Date: 20211216
  Transmission Date: 20220304
  Serious: No
  Sender: FDA-Public Use
  Company Number: US-SA-SAC20210506000398

PATIENT
  Age: 37 Year
  Sex: Female

DRUGS (4)
  1. DUPIXENT [Suspect]
     Active Substance: DUPILUMAB
     Indication: Asthma
     Dosage: 300 MG, QOW
     Route: 058
     Dates: start: 202006
  2. DUPIXENT [Suspect]
     Active Substance: DUPILUMAB
     Indication: Pulmonary eosinophilia
  3. FASENRA [Concomitant]
     Active Substance: BENRALIZUMAB
  4. CUVITRU [Concomitant]
     Active Substance: HUMAN IMMUNOGLOBULIN G
     Dosage: UNK

REACTIONS (4)
  - Upper respiratory tract infection [Unknown]
  - Respiratory tract infection [Recovered/Resolved]
  - Product use issue [Unknown]
  - Product use in unapproved indication [Unknown]

NARRATIVE: CASE EVENT DATE: 20200601
